FAERS Safety Report 10400843 (Version 1)
Quarter: 2014Q3

REPORT INFORMATION
  Report Type: Spontaneous
  Country: US (occurrence: US)
  Receive Date: 20140821
  Receipt Date: 20140821
  Transmission Date: 20150326
  Serious: No
  Sender: FDA-Public Use
  Company Number: US-ASTRAZENECA-2014SE18637

PATIENT
  Sex: Female

DRUGS (2)
  1. SYMBICORT [Suspect]
     Active Substance: BUDESONIDE\FORMOTEROL FUMARATE DIHYDRATE
     Indication: ASTHMA
     Dosage: 160/4.5 MCG, 1 INHALATION TWICE A DAY
     Route: 055
  2. SYMBICORT [Suspect]
     Active Substance: BUDESONIDE\FORMOTEROL FUMARATE DIHYDRATE
     Indication: ASTHMA
     Dosage: 160/4.5 MCG, 1 INHALATION DAILY
     Route: 055
     Dates: end: 2013

REACTIONS (9)
  - Hypersensitivity [Recovering/Resolving]
  - Intentional product misuse [Recovered/Resolved]
  - Upper respiratory tract congestion [Recovered/Resolved]
  - Laryngitis [Unknown]
  - Flushing [Unknown]
  - Off label use [Recovered/Resolved]
  - Rash [Unknown]
  - Urticaria [Unknown]
  - Dermatitis contact [Unknown]
